FAERS Safety Report 10515733 (Version 1)
Quarter: 2014Q4

REPORT INFORMATION
  Report Type: Spontaneous
  Country: IT (occurrence: None)
  Receive Date: 20141009
  Receipt Date: 20141009
  Transmission Date: 20150528
  Serious: Yes (Other)
  Sender: FDA-Public Use
  Company Number: B1023324A

PATIENT
  Age: 43 Year
  Sex: Female

DRUGS (2)
  1. PAROXETINE HYDROCHLORIDE. [Suspect]
     Active Substance: PAROXETINE HYDROCHLORIDE
     Indication: PANIC DISORDER
     Route: 048
  2. QUETIAPINE (FORMULATION UNKNOWN) (GENERIC) (QUETIAPINE FUMARATE) [Suspect]
     Active Substance: QUETIAPINE
     Indication: PRODUCT USED FOR UNKNOWN INDICATION
     Dosage: AT NIGHT

REACTIONS (9)
  - Gastrointestinal disorder [None]
  - Abdominal pain upper [None]
  - Agitation [None]
  - Generalised anxiety disorder [None]
  - Erosive oesophagitis [None]
  - Tremor [None]
  - Withdrawal syndrome [None]
  - Depersonalisation [None]
  - Disturbance in attention [None]
